FAERS Safety Report 5206525-3 (Version None)
Quarter: 2006Q4

REPORT INFORMATION
  Report Type: 
  Country: None (occurrence: None)
  Receive Date: 20061026
  Receipt Date: 20060828
  Transmission Date: 20070319
  Serious: No
  Sender: FDA-Public Use
  Company Number: 2006105389

PATIENT
  Sex: Female

DRUGS (5)
  1. LYRICA [Suspect]
     Dosage: 150 MG (50 MG, 3 IN 1 D)
     Dates: start: 20060711
  2. REQUIP [Concomitant]
  3. AVALIDE [Concomitant]
  4. GLUCOVANCE [Concomitant]
  5. ZOLOFT [Concomitant]

REACTIONS (2)
  - FEELING ABNORMAL [None]
  - PAIN IN EXTREMITY [None]
